FAERS Safety Report 8505360-8 (Version None)
Quarter: 2012Q3

REPORT INFORMATION
  Report Type: 
  Country: None (occurrence: None)
  Receive Date: 20120712
  Receipt Date: 20120703
  Transmission Date: 20120928
  Serious: Yes (Hospitalization)
  Sender: FDA-Public Use
  Company Number: AU-BRISTOL-MYERS SQUIBB COMPANY-16742652

PATIENT
  Age: 87 Year
  Sex: Female

DRUGS (9)
  1. LEVOTHYROXINE SODIUM [Concomitant]
     Route: 048
  2. PANTOPRAZOLE SODIUM [Concomitant]
     Route: 048
  3. METFORMIN HCL [Concomitant]
     Route: 048
  4. FOLIC ACID [Concomitant]
     Route: 048
  5. FUROSEMIDE [Concomitant]
     Route: 048
  6. DIAMICRON [Concomitant]
     Route: 048
  7. ASPIRIN [Concomitant]
     Route: 048
  8. ORENCIA [Suspect]
     Route: 042
     Dates: start: 20120314
  9. LIPITOR [Concomitant]
     Route: 048

REACTIONS (1)
  - DYSPHAGIA [None]
